FAERS Safety Report 9340741 (Version 1)
Quarter: 2013Q2

REPORT INFORMATION
  Report Type: Spontaneous
  Country: US (occurrence: US)
  Receive Date: 20130610
  Receipt Date: 20130610
  Transmission Date: 20140414
  Serious: No
  Sender: FDA-Public Use
  Company Number: US-ASTRAZENECA-2013SE38007

PATIENT
  Sex: Female

DRUGS (3)
  1. NEXIUM [Suspect]
     Dosage: BID
     Route: 048
  2. NEXIUM [Suspect]
     Dosage: DAILY
     Route: 048
  3. METOPROLOL [Suspect]
     Route: 048

REACTIONS (2)
  - Lip dry [Unknown]
  - Chapped lips [Unknown]
